FAERS Safety Report 17550341 (Version 3)
Quarter: 2020Q3

REPORT INFORMATION
  Report Type: Report from Study
  Country: PL (occurrence: PL)
  Receive Date: 20200317
  Receipt Date: 20200827
  Transmission Date: 20201102
  Serious: Yes (Other)
  Sender: FDA-Public Use
  Company Number: PL-PFIZER INC-2020109781

PATIENT
  Age: 64 Year
  Sex: Female

DRUGS (24)
  1. POTASSIUM [Concomitant]
     Active Substance: POTASSIUM
  2. TORASEMIDE [Concomitant]
     Active Substance: TORSEMIDE
  3. ASPIRINE [Concomitant]
     Active Substance: ASPIRIN
  4. EPLERENONE. [Concomitant]
     Active Substance: EPLERENONE
  5. QUETIAPINE. [Interacting]
     Active Substance: QUETIAPINE
     Dosage: UNK
  6. POTASSIUM [Concomitant]
     Active Substance: POTASSIUM
  7. PERINDOPRIL [Concomitant]
     Active Substance: PERINDOPRIL
  8. CLOPIDOGREL [Concomitant]
     Active Substance: CLOPIDOGREL BISULFATE
  9. QUETIAPINE. [Interacting]
     Active Substance: QUETIAPINE
     Dosage: UNK
  10. POTASSIUM [Concomitant]
     Active Substance: POTASSIUM
  11. PERINDOPRIL [Concomitant]
     Active Substance: PERINDOPRIL
  12. EPLERENONE. [Concomitant]
     Active Substance: EPLERENONE
  13. DILTIAZEM HCL [Interacting]
     Active Substance: DILTIAZEM HYDROCHLORIDE
     Dosage: UNK
  14. QUETIAPINE. [Interacting]
     Active Substance: QUETIAPINE
     Dosage: UNK
  15. TORASEMIDE [Concomitant]
     Active Substance: TORSEMIDE
  16. ASPIRINE [Concomitant]
     Active Substance: ASPIRIN
  17. ASPIRINE [Concomitant]
     Active Substance: ASPIRIN
  18. DILTIAZEM HCL [Suspect]
     Active Substance: DILTIAZEM HYDROCHLORIDE
     Dosage: UNK
  19. PERINDOPRIL [Concomitant]
     Active Substance: PERINDOPRIL
  20. CLOPIDOGREL [Concomitant]
     Active Substance: CLOPIDOGREL BISULFATE
  21. TORASEMIDE [Concomitant]
     Active Substance: TORSEMIDE
  22. CLOPIDOGREL [Concomitant]
     Active Substance: CLOPIDOGREL BISULFATE
  23. DILTIAZEM HCL [Interacting]
     Active Substance: DILTIAZEM HYDROCHLORIDE
     Dosage: UNK
  24. EPLERENONE. [Concomitant]
     Active Substance: EPLERENONE

REACTIONS (4)
  - Femoral neck fracture [Unknown]
  - Drug interaction [Unknown]
  - Fall [Unknown]
  - Vision blurred [Unknown]
